FAERS Safety Report 22211334 (Version 1)
Quarter: 2023Q2

REPORT INFORMATION
  Report Type: Spontaneous
  Country: US (occurrence: None)
  Receive Date: 20230413
  Receipt Date: 20230413
  Transmission Date: 20230722
  Serious: No
  Sender: FDA-Public Use
  Company Number: None

PATIENT
  Age: 53 Year
  Sex: Male
  Weight: 96.5 kg

DRUGS (13)
  1. CABENUVA [Suspect]
     Active Substance: CABOTEGRAVIR\RILPIVIRINE
     Dosage: OTHER FREQUENCY : EVERY 2 MONTHS;?
     Route: 030
     Dates: start: 20220613, end: 20230320
  2. ATORVASTATIN [Concomitant]
     Active Substance: ATORVASTATIN
     Dates: start: 20170426
  3. APIXABAN [Concomitant]
     Active Substance: APIXABAN
     Dates: start: 20210816
  4. FLUTICASONE [Concomitant]
     Active Substance: FLUTICASONE
     Dates: start: 20211214
  5. HYDROCHLOROTHIAZIDE [Concomitant]
     Active Substance: HYDROCHLOROTHIAZIDE
     Dates: start: 20191206
  6. IBUPROFEN [Concomitant]
     Active Substance: IBUPROFEN
     Dates: start: 20170426
  7. METHOCARBAMOL [Concomitant]
     Active Substance: METHOCARBAMOL
     Dates: start: 20210401
  8. LOSARTAN [Concomitant]
     Active Substance: LOSARTAN
     Dates: start: 20170426
  9. METOPROLOL SUCCINATE [Concomitant]
     Active Substance: METOPROLOL SUCCINATE
     Dates: start: 20211008
  10. MONTELUKAST [Concomitant]
     Active Substance: MONTELUKAST SODIUM
     Dates: start: 20211214
  11. PANTOPRAZOLE SODIUM [Concomitant]
     Active Substance: PANTOPRAZOLE SODIUM
     Dates: start: 20171227
  12. TRAZODONE [Concomitant]
     Active Substance: TRAZODONE HYDROCHLORIDE
     Dates: start: 20190624
  13. VALACYCLOVIR [Concomitant]
     Active Substance: VALACYCLOVIR HYDROCHLORIDE
     Dates: start: 20170426

REACTIONS (4)
  - Arthralgia [None]
  - Pain in extremity [None]
  - Insomnia [None]
  - Gait disturbance [None]

NARRATIVE: CASE EVENT DATE: 20230407
